FAERS Safety Report 6698213-1 (Version None)
Quarter: 2010Q2

REPORT INFORMATION
  Report Type: 
  Country: None (occurrence: None)
  Receive Date: 20100427
  Receipt Date: 20100421
  Transmission Date: 20101027
  Serious: Yes (Other)
  Sender: FDA-Public Use
  Company Number: US-SANOFI-AVENTIS-2010SA022199

PATIENT
  Age: 73 Year
  Sex: Male

DRUGS (11)
  1. PLAVIX [Suspect]
     Indication: CORONARY ARTERY BYPASS
     Route: 048
     Dates: start: 20020131
  2. PLAVIX [Suspect]
     Route: 048
     Dates: start: 20020131
  3. PLAVIX [Suspect]
     Dosage: HELD FOR COLONOSCOPY 2005, 2008, COLON RESECTION JAN2010, PORT INSERTION 11MAR2010
     Route: 048
     Dates: start: 20040901
  4. PLAVIX [Suspect]
     Dosage: HELD FOR COLONOSCOPY 2005, 2008, COLON RESECTION JAN2010, PORT INSERTION 11MAR2010
     Route: 048
     Dates: start: 20040901
  5. ASPIRIN [Concomitant]
  6. TOPROL-XL [Concomitant]
     Indication: BLOOD PRESSURE
  7. LIPITOR [Concomitant]
  8. MAGNESIUM [Concomitant]
  9. MULTI-VITAMINS [Concomitant]
  10. ANTIHYPERTENSIVES [Concomitant]
     Indication: BLOOD PRESSURE
  11. PEPCID [Concomitant]

REACTIONS (8)
  - ABDOMINAL NEOPLASM [None]
  - ANAEMIA [None]
  - CLOSTRIDIAL INFECTION [None]
  - COLON CANCER [None]
  - EPISTAXIS [None]
  - LARGE INTESTINAL HAEMORRHAGE [None]
  - METASTASES TO LYMPH NODES [None]
  - UNDERDOSE [None]
